FAERS Safety Report 22653595 (Version 1)
Quarter: 2023Q2

REPORT INFORMATION
  Report Type: Spontaneous
  Country: US (occurrence: US)
  Receive Date: 20230629
  Receipt Date: 20230629
  Transmission Date: 20230721
  Serious: Yes (Hospitalization, Other)
  Sender: FDA-Public Use
  Company Number: US-TEVA-2023-US-2899807

PATIENT

DRUGS (1)
  1. AMIODARONE [Suspect]
     Active Substance: AMIODARONE
     Indication: Product used for unknown indication
     Dosage: 200 MILLIGRAM DAILY;
     Route: 048

REACTIONS (19)
  - Gait disturbance [Not Recovered/Not Resolved]
  - Fall [Not Recovered/Not Resolved]
  - Ischaemic stroke [Recovering/Resolving]
  - Asthenia [Unknown]
  - Atrial fibrillation [Unknown]
  - Cerebral infarction [Unknown]
  - Haemorrhage intracranial [Unknown]
  - Head discomfort [Unknown]
  - Confusional state [Unknown]
  - Emotional disorder [Unknown]
  - Blood cholesterol decreased [Unknown]
  - Illusion [Unknown]
  - Speech disorder [Unknown]
  - Facial paresis [Unknown]
  - Gastrooesophageal reflux disease [Unknown]
  - Musculoskeletal disorder [Unknown]
  - Neck pain [Unknown]
  - Pain in extremity [Unknown]
  - Dysarthria [Unknown]

NARRATIVE: CASE EVENT DATE: 20220428
